FAERS Safety Report 26108165 (Version 1)
Quarter: 2025Q4

REPORT INFORMATION
  Report Type: Spontaneous
  Country: US (occurrence: US)
  Receive Date: 20251201
  Receipt Date: 20251201
  Transmission Date: 20260117
  Serious: Yes (Hospitalization, Other)
  Sender: AMGEN
  Company Number: US-AMGEN-USASP2025231061

PATIENT
  Sex: Female

DRUGS (2)
  1. IMDELLTRA [Suspect]
     Active Substance: TARLATAMAB-DLLE
     Indication: Small cell lung cancer
     Dosage: UNK, CYCLE 1
     Route: 040
  2. IMDELLTRA [Suspect]
     Active Substance: TARLATAMAB-DLLE
     Dosage: 10 MILLIGRAM, PER DOSING SCHEDULE (CYCLE 2 DAY 1)
     Route: 040

REACTIONS (5)
  - Immune effector cell-associated neurotoxicity syndrome [Recovered/Resolved]
  - Metastases to central nervous system [Unknown]
  - Failure to thrive [Unknown]
  - Ill-defined disorder [Unknown]
  - Off label use [Unknown]

NARRATIVE: CASE EVENT DATE: 20250101
